FAERS Safety Report 21627923 (Version 1)
Quarter: 2022Q4

REPORT INFORMATION
  Report Type: Spontaneous
  Country: US (occurrence: US)
  Receive Date: 20221122
  Receipt Date: 20221122
  Transmission Date: 20230113
  Serious: Yes (Death, Hospitalization, Other)
  Sender: FDA-Public Use
  Company Number: US-GLAXOSMITHKLINE-US2016GSK193636

PATIENT
  Age: 20 Year
  Sex: Female

DRUGS (8)
  1. IBUPROFEN [Suspect]
     Active Substance: IBUPROFEN
     Route: 048
  2. ACETAMINOPHEN [Suspect]
     Active Substance: ACETAMINOPHEN
     Route: 048
  3. ALCOHOL [Suspect]
     Active Substance: ALCOHOL
     Route: 048
  4. NAPROXEN [Suspect]
     Active Substance: NAPROXEN
     Route: 048
  5. OXYMORPHONE [Suspect]
     Active Substance: OXYMORPHONE
     Route: 048
  6. OXYCODONE [Suspect]
     Active Substance: OXYCODONE
     Route: 048
  7. HYDROCODONE [Suspect]
     Active Substance: HYDROCODONE
     Route: 048
  8. TRAMADOL [Suspect]
     Active Substance: TRAMADOL
     Route: 048

REACTIONS (1)
  - Completed suicide [Fatal]
